FAERS Safety Report 5000092-5 (Version None)
Quarter: 2006Q2

REPORT INFORMATION
  Report Type: 
  Country: None (occurrence: None)
  Receive Date: 20060501
  Receipt Date: 20060418
  Transmission Date: 20061013
  Serious: Yes (Hospitalization)
  Sender: FDA-Public Use
  Company Number: 2006052766

PATIENT
  Age: 50 Year
  Sex: Male

DRUGS (4)
  1. ANSATIPINE  (RIFABUTIN) [Suspect]
     Indication: ILL-DEFINED DISORDER
     Dosage: 150 MG (EVERY DAY), ORAL
     Route: 048
     Dates: start: 20060124, end: 20060201
  2. MYAMBUTOL [Suspect]
     Indication: ILL-DEFINED DISORDER
     Dosage: 4 DOSE FORMS (EVERY DAY), ORAL
     Route: 048
     Dates: start: 20060124, end: 20060213
  3. CLARITHROMYCIN [Suspect]
     Indication: ILL-DEFINED DISORDER
     Dosage: 4 DOSE FORMS (EVERY DAY), ORAL
     Route: 048
     Dates: start: 20060125, end: 20060213
  4. RIMIFON [Concomitant]

REACTIONS (11)
  - BLOOD ALKALINE PHOSPHATASE INCREASED [None]
  - CHOLESTASIS [None]
  - EOSINOPHILIA [None]
  - GAMMA-GLUTAMYLTRANSFERASE INCREASED [None]
  - HEPATOMEGALY [None]
  - KIDNEY ENLARGEMENT [None]
  - LYMPHADENOPATHY [None]
  - NEPHRITIS INTERSTITIAL [None]
  - RASH PAPULAR [None]
  - RASH PUSTULAR [None]
  - SPLENOMEGALY [None]
